FAERS Safety Report 9067469 (Version 2)
Quarter: 2013Q1

REPORT INFORMATION
  Report Type: Spontaneous
  Country: AU (occurrence: AU)
  Receive Date: 20130129
  Receipt Date: 20130307
  Transmission Date: 20140127
  Serious: Yes (Other)
  Sender: FDA-Public Use
  Company Number: PHHY2013AU008028

PATIENT
  Age: 75 None
  Sex: Male

DRUGS (2)
  1. ACLASTA [Suspect]
     Dosage: UNK UKN, UNK
     Route: 042
     Dates: start: 20120319
  2. ACLASTA [Suspect]
     Dosage: UNK UKN, UNK
     Route: 042
     Dates: start: 20130125

REACTIONS (3)
  - Cardiac arrest [Recovered/Resolved]
  - Heart rate irregular [Recovered/Resolved]
  - Inappropriate schedule of drug administration [Unknown]
